FAERS Safety Report 9703935 (Version 3)
Quarter: 2014Q1

REPORT INFORMATION
  Report Type: Report from Study
  Country: GB (occurrence: GB)
  Receive Date: 20131122
  Receipt Date: 20140106
  Transmission Date: 20141002
  Serious: Yes (Hospitalization)
  Sender: FDA-Public Use
  Company Number: GB-VERTEX PHARMACEUTICALS INC-2013-011212

PATIENT
  Age: 12 Year
  Sex: Male
  Weight: 36.1 kg

DRUGS (11)
  1. VX-809 FDC [Suspect]
     Indication: CYSTIC FIBROSIS
     Dosage: 400 MG, Q12H
     Route: 048
     Dates: start: 20131003, end: 20131105
  2. VX-770 FDC [Suspect]
     Indication: CYSTIC FIBROSIS
     Dosage: 250 MG, Q12H
     Route: 048
     Dates: start: 20131003, end: 20131105
  3. CREON [Concomitant]
     Indication: PANCREATIC INSUFFICIENCY
     Dosage: UNK
     Dates: start: 20010615
  4. VITAMIN E [Concomitant]
     Indication: PANCREATIC INSUFFICIENCY
     Dosage: UNK
     Dates: start: 20010613
  5. VITAMIN A + D [Concomitant]
     Indication: PANCREATIC INSUFFICIENCY
     Dosage: UNK
     Dates: start: 20030313
  6. DEOXYRIBONUCLEASE HUMAN [Concomitant]
     Indication: CYSTIC FIBROSIS LUNG
     Dosage: UNK
     Dates: start: 20030314
  7. LORATADINE [Concomitant]
     Indication: SEASONAL ALLERGY
     Dosage: UNK
     Dates: start: 20090727
  8. SALBUTAMOL [Concomitant]
     Indication: CYSTIC FIBROSIS LUNG
     Dosage: UNK
     Dates: start: 20061025
  9. MOVICOL [Concomitant]
  10. AVAMYS [Concomitant]
     Indication: NASAL POLYPS
     Dosage: UNK
     Dates: start: 20130425
  11. FLUORIDE [Concomitant]
     Indication: PANCREATIC INSUFFICIENCY
     Dosage: UNK
     Dates: start: 20020213

REACTIONS (1)
  - Forced expiratory volume decreased [Recovered/Resolved]
